FAERS Safety Report 10528814 (Version 1)
Quarter: 2014Q4

REPORT INFORMATION
  Report Type: Report from Study
  Country: LB (occurrence: LB)
  Receive Date: 20141020
  Receipt Date: 20141020
  Transmission Date: 20150528
  Serious: Yes (Other)
  Sender: FDA-Public Use
  Company Number: US-ASTRAZENECA-2014SE79350

PATIENT
  Sex: Female
  Weight: 76 kg

DRUGS (4)
  1. NPH INSULIN [Concomitant]
     Active Substance: INSULIN BEEF
  2. NOVUNORM [Concomitant]
     Dosage: UNK DOSE
  3. CANDESARTAN CILEXETIL AND HYDROCHLOROTHIAZIDE [Suspect]
     Active Substance: CANDESARTAN CILEXETIL\HYDROCHLOROTHIAZIDE
     Indication: HYPERTENSION
     Dosage: 16 MG/12.5 MG
     Route: 048
  4. CONCOR [Concomitant]
     Active Substance: BISOPROLOL FUMARATE

REACTIONS (1)
  - Myocardial infarction [Unknown]
